FAERS Safety Report 8337880-3 (Version None)
Quarter: 2012Q2

REPORT INFORMATION
  Report Type: 
  Country: None (occurrence: None)
  Receive Date: 20120504
  Receipt Date: 20120425
  Transmission Date: 20120825
  Serious: Yes (Other)
  Sender: FDA-Public Use
  Company Number: US-ELI_LILLY_AND_COMPANY-US201204009144

PATIENT
  Sex: Female

DRUGS (2)
  1. ADCIRCA [Suspect]
     Dosage: 40 MG, QD
  2. ADCIRCA [Suspect]
     Dosage: 20 MG, QD

REACTIONS (2)
  - PLEURAL EFFUSION [None]
  - HEART RATE INCREASED [None]
